FAERS Safety Report 25329350 (Version 1)
Quarter: 2025Q2

REPORT INFORMATION
  Report Type: Spontaneous
  Country: US (occurrence: US)
  Receive Date: 20250519
  Receipt Date: 20250519
  Transmission Date: 20250717
  Serious: Yes (Other)
  Sender: COOPERSURGICAL
  Company Number: US-COOPERSURGICAL, INC.-2025CPS003850

PATIENT
  Age: 36 Year
  Sex: Female
  Weight: 104.31 kg

DRUGS (1)
  1. PARAGARD T 380A [Suspect]
     Active Substance: COPPER
     Route: 015
     Dates: start: 20090401, end: 20130101

REACTIONS (13)
  - Reproductive complication associated with device [Not Recovered/Not Resolved]
  - Salpingo-oophorectomy [Not Recovered/Not Resolved]
  - Infected cyst [Recovered/Resolved]
  - Uterine leiomyoma [Unknown]
  - Idiopathic intracranial hypertension [Not Recovered/Not Resolved]
  - Oophoritis [Unknown]
  - Ovarian neoplasm [Unknown]
  - Ovarian adhesion [Unknown]
  - Pelvic inflammatory disease [Unknown]
  - Gait inability [Unknown]
  - Anxiety [Unknown]
  - Depression [Unknown]
  - Heavy menstrual bleeding [Not Recovered/Not Resolved]

NARRATIVE: CASE EVENT DATE: 20130101
